FAERS Safety Report 25901877 (Version 1)
Quarter: 2025Q4

REPORT INFORMATION
  Report Type: Spontaneous
  Country: US (occurrence: US)
  Receive Date: 20251009
  Receipt Date: 20251009
  Transmission Date: 20260117
  Serious: No
  Sender: SANOFI AVENTIS
  Company Number: US-SA-2025SA298312

PATIENT
  Age: 77 Year
  Sex: Male

DRUGS (2)
  1. DUPIXENT [Suspect]
     Active Substance: DUPILUMAB
     Indication: Dermatitis atopic
     Dosage: 300 MG, QOW
     Route: 058
  2. RESTASIS [Concomitant]
     Active Substance: CYCLOSPORINE
     Indication: Dry eye

REACTIONS (10)
  - Scab [Unknown]
  - Discomfort [Unknown]
  - Skin haemorrhage [Unknown]
  - Visual impairment [Unknown]
  - Skin fissures [Unknown]
  - Skin exfoliation [Unknown]
  - Insomnia [Unknown]
  - Pruritus [Recovering/Resolving]
  - Back pain [Unknown]
  - Rash [Unknown]
